FAERS Safety Report 19652020 (Version 1)
Quarter: 2021Q3

REPORT INFORMATION
  Report Type: Spontaneous
  Country: US (occurrence: US)
  Receive Date: 20210803
  Receipt Date: 20210803
  Transmission Date: 20211014
  Serious: No
  Sender: FDA-Public Use
  Company Number: US-TAKEDA-2021TUS046880

PATIENT
  Sex: Female
  Weight: 104 kg

DRUGS (28)
  1. MEGAZYME [Concomitant]
     Active Substance: .ALPHA.-AMYLASE (ASPERGILLUS ORYZAE)\BROMELAINS\CHYMOTRYPSIN\LYSOZYME\PANCRELIPASE\PANCRELIPASE LIPASE\PAPAIN\TRYPSIN
     Dosage: IN AFTERNOON
     Route: 065
  2. XANAX [Concomitant]
     Active Substance: ALPRAZOLAM
     Dosage: IN MORNING
     Route: 065
  3. ABTEI BIOTIN [Concomitant]
     Active Substance: BIOTIN
     Dosage: IN MORNING
     Route: 065
  4. PANTOPRAZOLE [Concomitant]
     Active Substance: PANTOPRAZOLE
     Dosage: IN MORNING
     Route: 065
  5. TOPIRAMATE. [Concomitant]
     Active Substance: TOPIRAMATE
     Indication: HERPES ZOSTER
  6. DICYCLOMINE CO [Concomitant]
     Dosage: IN AFTERNOON
     Route: 065
  7. VOLTAREN [Concomitant]
     Active Substance: DICLOFENAC SODIUM
     Dosage: AT NIGHT
     Route: 065
  8. ALLEGRA [Concomitant]
     Active Substance: FEXOFENADINE HYDROCHLORIDE
     Dosage: UNK, QD
     Route: 065
  9. CARVEDILOL GENERIC [Concomitant]
     Dosage: IN MORNING
     Route: 065
  10. THYROID [Concomitant]
     Active Substance: LEVOTHYROXINE\LIOTHYRONINE
     Dosage: IN MORNING
     Route: 065
  11. FISH OIL [Concomitant]
     Active Substance: FISH OIL
     Dosage: IN MORNING
     Route: 065
  12. MUCINEX [Concomitant]
     Active Substance: GUAIFENESIN
     Dosage: AS NEEDED
     Route: 065
  13. SYSTANE ULTRA UD [Concomitant]
     Dosage: PRN
     Route: 065
  14. LACTAID [Concomitant]
     Active Substance: LACTASE
  15. XYZAC [Concomitant]
  16. ASPIRIN. [Concomitant]
     Active Substance: ASPIRIN
     Dosage: IN MORNING
     Route: 065
  17. ABTEI CALCIUM+D3 OSTEO VITAL [Concomitant]
     Dosage: IN MORNING
     Route: 065
  18. CUVITRU [Suspect]
     Active Substance: HUMAN IMMUNOGLOBULIN G
     Indication: IMMUNODEFICIENCY COMMON VARIABLE
     Dosage: 8 GRAM, 1/WEEK
     Route: 058
  19. VITAMIN D3 [Concomitant]
     Active Substance: CHOLECALCIFEROL
     Dosage: IN MORNING
     Route: 065
  20. FLONASE SENSIMIST ALLERGY RELIEF [Concomitant]
     Active Substance: FLUTICASONE FUROATE
     Dosage: IN MORNING
     Route: 065
  21. RANEXA [Concomitant]
     Active Substance: RANOLAZINE
     Dosage: IN MORNING
     Route: 065
  22. PLAVIX [Concomitant]
     Active Substance: CLOPIDOGREL BISULFATE
     Dosage: IN MORNING
     Route: 065
  23. AMOXICILLIN. [Concomitant]
     Active Substance: AMOXICILLIN
     Dosage: UNK UNK, QD, IN MORNING
     Route: 065
  24. TYLENOL [Concomitant]
     Active Substance: ACETAMINOPHEN
     Dosage: IN MORNING
     Route: 065
  25. CRESTOR [Concomitant]
     Active Substance: ROSUVASTATIN CALCIUM
     Dosage: IN AFTERNOON
     Route: 065
  26. L?LYSINE [Concomitant]
     Active Substance: LYSINE
     Dosage: IN MORNING
     Route: 065
  27. TOPIRAMATE. [Concomitant]
     Active Substance: TOPIRAMATE
     Indication: ORAL HERPES
     Dosage: IN AFTERNOON
     Route: 065
  28. ALBUTEROL SULFATE HFA [Concomitant]
     Active Substance: ALBUTEROL SULFATE
     Dosage: AS NEEDED
     Route: 065

REACTIONS (2)
  - Headache [Recovered/Resolved]
  - Incorrect drug administration rate [Unknown]
